FAERS Safety Report 9449144 (Version 3)
Quarter: 2013Q3

REPORT INFORMATION
  Report Type: Spontaneous
  Country: CA (occurrence: CA)
  Receive Date: 20130808
  Receipt Date: 20130927
  Transmission Date: 20140515
  Serious: Yes (Other)
  Sender: FDA-Public Use
  Company Number: CA-PFIZER INC-2013226086

PATIENT
  Age: 4 Year
  Sex: Male

DRUGS (2)
  1. BENEFIX [Suspect]
     Indication: FACTOR IX DEFICIENCY
     Dosage: 1000 IU, 2X/WEEK
     Route: 042
     Dates: start: 20130429
  2. BENEFIX [Suspect]
     Indication: PROPHYLAXIS

REACTIONS (4)
  - Epistaxis [Recovered/Resolved]
  - Limb injury [Recovered/Resolved]
  - Local swelling [Recovered/Resolved]
  - Tenderness [Recovered/Resolved]
